FAERS Safety Report 9659587 (Version 1)
Quarter: 2013Q4

REPORT INFORMATION
  Report Type: Report from Study
  Country: CA (occurrence: CA)
  Receive Date: 20131031
  Receipt Date: 20131031
  Transmission Date: 20140711
  Serious: Yes (Other)
  Sender: FDA-Public Use
  Company Number: CA-MYLANLABS-2013S1023572

PATIENT
  Age: 59 Year
  Sex: Male

DRUGS (2)
  1. METOPROLOL [Suspect]
     Indication: ATRIAL FIBRILLATION
     Route: 065
  2. WARFARIN [Concomitant]
     Indication: ANTICOAGULANT THERAPY
     Route: 065

REACTIONS (1)
  - Haemorrhagic stroke [Recovered/Resolved]
